FAERS Safety Report 14127544 (Version 1)
Quarter: 2017Q4

REPORT INFORMATION
  Report Type: Spontaneous
  Country: US (occurrence: US)
  Receive Date: 20171026
  Receipt Date: 20171026
  Transmission Date: 20180321
  Serious: No
  Sender: FDA-Public Use
  Company Number: US-009507513-1710USA002037

PATIENT
  Age: 83 Year
  Sex: Female
  Weight: 63.5 kg

DRUGS (11)
  1. DILTIAZEM CD [Concomitant]
     Active Substance: DILTIAZEM
     Dosage: 180 MG, UNK
     Dates: start: 20170213
  2. RASAGILINE. [Concomitant]
     Active Substance: RASAGILINE
     Dosage: 1 DF, QD
     Route: 048
     Dates: start: 20170321
  3. OXYBUTYNIN CHLORIDE. [Concomitant]
     Active Substance: OXYBUTYNIN CHLORIDE
     Dosage: 5 MG, UNK
     Dates: start: 20170320
  4. ASPIRIN. [Concomitant]
     Active Substance: ASPIRIN
     Dosage: 1 DF, QD
     Route: 048
     Dates: start: 20150204
  5. LOVASTATIN. [Concomitant]
     Active Substance: LOVASTATIN
     Dosage: 40 MG, UNK
     Dates: start: 20170320
  6. SINEMET [Suspect]
     Active Substance: CARBIDOPA\LEVODOPA
     Indication: PARKINSON^S DISEASE
     Dosage: 1 DF, 3 TIMES A DAY
     Route: 048
     Dates: start: 20161229
  7. SINEMET [Suspect]
     Active Substance: CARBIDOPA\LEVODOPA
     Dosage: 1 TABLET IN THE MORNING ,HALF TABLET IN THE AFTERNOON AND HALF TABLET IN THE EVENING
     Dates: start: 20170421
  8. LYRICA [Concomitant]
     Active Substance: PREGABALIN
     Indication: DYSTONIA
     Dosage: 1 DF, TID
     Route: 048
     Dates: start: 20170208
  9. ESCITALOPRAM [Concomitant]
     Active Substance: ESCITALOPRAM OXALATE
     Dosage: 1 DF, QD
     Route: 048
     Dates: start: 20170320
  10. LATANOPROST. [Concomitant]
     Active Substance: LATANOPROST
     Dosage: UNK
     Dates: start: 20161215
  11. BRIMONIDINE TARTRATE. [Concomitant]
     Active Substance: BRIMONIDINE TARTRATE
     Dosage: UNK
     Dates: start: 20161215

REACTIONS (4)
  - Drug tolerance [Unknown]
  - Pain in extremity [Unknown]
  - Dystonia [Unknown]
  - Somnolence [Unknown]

NARRATIVE: CASE EVENT DATE: 2017
